FAERS Safety Report 5914704-2 (Version None)
Quarter: 2008Q4

REPORT INFORMATION
  Report Type: 
  Country: None (occurrence: None)
  Receive Date: 20081010
  Receipt Date: 20081006
  Transmission Date: 20090506
  Serious: Yes (Other)
  Sender: FDA-Public Use
  Company Number: JP-ABBOTT-08P-087-0480204-00

PATIENT
  Age: 66 Year
  Sex: Female

DRUGS (1)
  1. FENOFIBRATE [Suspect]
     Indication: HYPERLIPIDAEMIA
     Dosage: 100 MG DAILY
     Route: 048
     Dates: start: 20080804, end: 20080901

REACTIONS (1)
  - HEPATITIS ACUTE [None]
